FAERS Safety Report 10433194 (Version 1)
Quarter: 2014Q3

REPORT INFORMATION
  Report Type: Report from Study
  Country: US (occurrence: US)
  Receive Date: 20140905
  Receipt Date: 20140905
  Transmission Date: 20150326
  Serious: Yes (Hospitalization)
  Sender: FDA-Public Use
  Company Number: US-JNJFOC-20140902845

PATIENT
  Age: 32 Year
  Sex: Male

DRUGS (1)
  1. RIVAROXABAN [Suspect]
     Active Substance: RIVAROXABAN
     Indication: ANTICOAGULANT THERAPY
     Route: 048

REACTIONS (9)
  - Mesenteric vein thrombosis [Recovered/Resolved]
  - Oesophageal varices haemorrhage [Recovered/Resolved]
  - Anaemia [Recovered/Resolved]
  - Pancytopenia [Recovered/Resolved]
  - Hepatic cirrhosis [Unknown]
  - Drug ineffective [Unknown]
  - Portal hypertension [Unknown]
  - Portal vein thrombosis [Recovered/Resolved]
  - Splenic thrombosis [Recovered/Resolved]
